FAERS Safety Report 10399342 (Version 1)
Quarter: 2014Q1

REPORT INFORMATION
  Report Type: Spontaneous
  Country: US (occurrence: None)
  Receive Date: 20130815
  Receipt Date: 20130815
  Transmission Date: 20141002
  Serious: Yes (Hospitalization, Other)
  Sender: FDA-Public Use
  Company Number: ADR-2012-02230

PATIENT
  Sex: Male

DRUGS (1)
  1. LIORESAL INTRACTHECAL (BACLOFEN INJECTION) [Suspect]
     Indication: MUSCLE SPASTICITY
     Dosage: 229.7MCG/DAY
     Route: 037

REACTIONS (3)
  - Lethargy [None]
  - Pruritus [None]
  - Muscle spasticity [None]
